FAERS Safety Report 15931981 (Version 3)
Quarter: 2019Q2

REPORT INFORMATION
  Report Type: Spontaneous
  Country: US (occurrence: US)
  Receive Date: 20190207
  Receipt Date: 20190618
  Transmission Date: 20190711
  Serious: Yes (Hospitalization, Other)
  Sender: FDA-Public Use
  Company Number: US-ASTRAZENECA-2019SE18690

PATIENT
  Age: 21074 Day
  Sex: Female

DRUGS (38)
  1. OMEPRAZOLE. [Suspect]
     Active Substance: OMEPRAZOLE
     Indication: DYSPEPSIA
     Route: 065
     Dates: start: 20101105, end: 20171011
  2. ALKA-SELTZER [Concomitant]
     Active Substance: ANHYDROUS CITRIC ACID\ASPIRIN\SODIUM BICARBONATE
     Dates: start: 2000
  3. LIPITOR [Concomitant]
     Active Substance: ATORVASTATIN CALCIUM
     Dates: start: 20100719
  4. HYDROCODONE BITARTRATE AND ACETAMINOPHEN [Concomitant]
     Active Substance: ACETAMINOPHEN\HYDROCODONE BITARTRATE
     Dates: start: 20100719
  5. AVANDIA [Concomitant]
     Active Substance: ROSIGLITAZONE MALEATE
  6. NATEGLINIDE. [Concomitant]
     Active Substance: NATEGLINIDE
  7. ATORVASTATIN [Concomitant]
     Active Substance: ATORVASTATIN
     Indication: BLOOD CHOLESTEROL INCREASED
     Dates: start: 20140113, end: 20150410
  8. TUMS [Concomitant]
     Active Substance: CALCIUM CARBONATE
     Dates: start: 20120417, end: 20171010
  9. DIAZEPAM. [Concomitant]
     Active Substance: DIAZEPAM
     Dates: start: 2000
  10. CARVEDILOL. [Concomitant]
     Active Substance: CARVEDILOL
     Dates: start: 20100719
  11. AZITHROMYCIN ANHYDROUS. [Concomitant]
     Active Substance: AZITHROMYCIN ANHYDROUS
     Dates: start: 20100719
  12. LACTULOSE. [Concomitant]
     Active Substance: LACTULOSE
  13. ALLOPURINOL. [Concomitant]
     Active Substance: ALLOPURINOL
  14. AVELOX [Concomitant]
     Active Substance: MOXIFLOXACIN HYDROCHLORIDE
  15. PAROXETINE. [Concomitant]
     Active Substance: PAROXETINE
  16. NEXIUM [Suspect]
     Active Substance: ESOMEPRAZOLE MAGNESIUM
     Indication: DYSPEPSIA
     Route: 048
     Dates: start: 20090514, end: 20101008
  17. DIAZEPAM. [Concomitant]
     Active Substance: DIAZEPAM
  18. ALBUTEROL. [Concomitant]
     Active Substance: ALBUTEROL
  19. HYDROCODONE [Concomitant]
     Active Substance: HYDROCODONE
  20. CEFTRIAXONE. [Concomitant]
     Active Substance: CEFTRIAXONE
  21. QUETIAPINE. [Concomitant]
     Active Substance: QUETIAPINE
  22. FUROSEMIDE. [Concomitant]
     Active Substance: FUROSEMIDE
     Indication: HYPERTENSION
     Dates: start: 20120417, end: 20171010
  23. COLACE [Concomitant]
     Active Substance: DOCUSATE SODIUM
  24. LEVOFLOXACIN. [Concomitant]
     Active Substance: LEVOFLOXACIN
  25. NEXIUM [Suspect]
     Active Substance: ESOMEPRAZOLE MAGNESIUM
     Indication: DYSPEPSIA
     Route: 048
     Dates: start: 20090504, end: 20171011
  26. PAROXETINE. [Concomitant]
     Active Substance: PAROXETINE
     Indication: HYPOKALAEMIA
     Dates: start: 20090514, end: 20140409
  27. DIOVAN [Concomitant]
     Active Substance: VALSARTAN
  28. STARLIX [Concomitant]
     Active Substance: NATEGLINIDE
  29. FUROSEMIDE. [Concomitant]
     Active Substance: FUROSEMIDE
  30. VALIUM [Concomitant]
     Active Substance: DIAZEPAM
  31. IPRATROPIUM [Concomitant]
     Active Substance: IPRATROPIUM
  32. FLUTICASONE. [Concomitant]
     Active Substance: FLUTICASONE
  33. FUROSEMIDE. [Concomitant]
     Active Substance: FUROSEMIDE
     Dates: start: 20100719
  34. COMBIVENT [Concomitant]
     Active Substance: ALBUTEROL SULFATE\IPRATROPIUM BROMIDE
  35. KEFLEX [Concomitant]
     Active Substance: CEPHALEXIN
  36. DICLOFENAC [Concomitant]
     Active Substance: DICLOFENAC
  37. NIFEDIPINE. [Concomitant]
     Active Substance: NIFEDIPINE
  38. LEVOTHYROXINE. [Concomitant]
     Active Substance: LEVOTHYROXINE

REACTIONS (3)
  - Acute kidney injury [Not Recovered/Not Resolved]
  - Chronic kidney disease [Not Recovered/Not Resolved]
  - Renal failure [Unknown]

NARRATIVE: CASE EVENT DATE: 20100406
